FAERS Safety Report 15486471 (Version 1)
Quarter: 2018Q4

REPORT INFORMATION
  Report Type: Other
  Country: GB (occurrence: GB)
  Receive Date: 20181011
  Receipt Date: 20181011
  Transmission Date: 20190205
  Serious: Yes (Other)
  Sender: FDA-Public Use
  Company Number: GB-DEXPHARM-20180772

PATIENT
  Age: 31 Year
  Sex: Female
  Weight: 82.55 kg

DRUGS (1)
  1. CORSODYL [Suspect]
     Active Substance: CHLORHEXIDINE GLUCONATE
     Indication: GINGIVAL BLEEDING
     Route: 048
     Dates: start: 20180831, end: 20180904

REACTIONS (5)
  - Dizziness [Recovered/Resolved]
  - Insomnia [Recovering/Resolving]
  - Pruritus generalised [Recovered/Resolved]
  - Tension headache [Not Recovered/Not Resolved]
  - Dyspnoea [Recovered/Resolved with Sequelae]

NARRATIVE: CASE EVENT DATE: 20180901
